FAERS Safety Report 8623615 (Version 3)
Quarter: 2014Q1

REPORT INFORMATION
  Report Type: Spontaneous
  Country: JP (occurrence: JP)
  Receive Date: 20120620
  Receipt Date: 20140319
  Transmission Date: 20141002
  Serious: Yes (Other)
  Sender: FDA-Public Use
  Company Number: JP-SANOFI-AVENTIS-2012SA029061

PATIENT
  Age: 55 Year
  Sex: Male
  Weight: 69 kg

DRUGS (21)
  1. CALCIUM FOLINATE [Suspect]
     Indication: RECTAL CANCER
     Dosage: 10 COURSES
     Route: 065
     Dates: start: 20070508, end: 20071015
  2. CALCIUM FOLINATE [Suspect]
     Indication: RECTAL CANCER
     Route: 065
     Dates: start: 20071203
  3. ELPLAT [Suspect]
     Indication: RECTAL CANCER
     Route: 041
     Dates: start: 20070508, end: 20070508
  4. ELPLAT [Suspect]
     Indication: RECTAL CANCER
     Route: 041
     Dates: start: 20070521, end: 20070521
  5. ELPLAT [Suspect]
     Indication: RECTAL CANCER
     Route: 041
     Dates: start: 20070604, end: 20070604
  6. ELPLAT [Suspect]
     Indication: RECTAL CANCER
     Route: 041
     Dates: start: 20070618, end: 20070618
  7. ELPLAT [Suspect]
     Indication: RECTAL CANCER
     Route: 041
     Dates: start: 20070717, end: 20070717
  8. ELPLAT [Suspect]
     Indication: RECTAL CANCER
     Route: 041
     Dates: start: 20070730, end: 20070730
  9. ELPLAT [Suspect]
     Indication: RECTAL CANCER
     Route: 041
     Dates: start: 20070820, end: 20070820
  10. ELPLAT [Suspect]
     Indication: RECTAL CANCER
     Route: 041
     Dates: start: 20070918, end: 20070918
  11. FLUOROURACIL [Suspect]
     Indication: RECTAL CANCER
     Dosage: BOLUS
     Route: 042
     Dates: start: 20070508
  12. FLUOROURACIL [Suspect]
     Indication: RECTAL CANCER
     Dosage: BOLUS
     Route: 042
     Dates: start: 20070820
  13. FLUOROURACIL [Suspect]
     Indication: RECTAL CANCER
     Dosage: ON DAY 1 AND 2 AS 46-HOUR CONTINOUS INFUSION,
     Route: 042
     Dates: start: 20071203
  14. FLUOROURACIL [Suspect]
     Indication: RECTAL CANCER
     Dosage: BOLUS
     Dates: start: 20071203
  15. FLUOROURACIL [Suspect]
     Indication: RECTAL CANCER
     Dosage: BOLUS
     Route: 042
     Dates: start: 20070717
  16. FLUOROURACIL [Suspect]
     Indication: RECTAL CANCER
     Dosage: ON DAY 1 AND 2 AS 46-HOUR CONTINOUS INFUSION,
     Route: 042
     Dates: start: 20070508
  17. FLUOROURACIL [Suspect]
     Indication: RECTAL CANCER
     Dosage: ON DAY 1 AND 2 AS 46-HOUR CONTINOUS INFUSION,
     Route: 042
     Dates: start: 20070717
  18. FLUOROURACIL [Suspect]
     Indication: RECTAL CANCER
     Dosage: ON DAY 1 AND 2 AS 46-HOUR CONTINOUS INFUSION,
     Route: 042
     Dates: start: 20070820
  19. FLUOROURACIL [Suspect]
     Indication: RECTAL CANCER
     Dosage: 10 TH CYCLE
     Route: 065
     Dates: start: 20071015
  20. KYTRIL [Concomitant]
     Dates: start: 20070508, end: 20071015
  21. DECADRON [Concomitant]
     Dates: start: 20070508, end: 20071015

REACTIONS (4)
  - Bone marrow failure [Unknown]
  - Granulocyte count decreased [Recovering/Resolving]
  - Platelet count decreased [Unknown]
  - White blood cell count decreased [Unknown]
